FAERS Safety Report 25899547 (Version 1)
Quarter: 2025Q4

REPORT INFORMATION
  Report Type: Spontaneous
  Country: US (occurrence: US)
  Receive Date: 20251009
  Receipt Date: 20251009
  Transmission Date: 20260118
  Serious: Yes (Other)
  Sender: Otter
  Company Number: US-OTTER-US-2025AST000202

PATIENT
  Age: 40 Year
  Sex: Female

DRUGS (2)
  1. METHOTREXATE [Suspect]
     Active Substance: METHOTREXATE
     Indication: Gestational trophoblastic tumour
     Dosage: 25 MG, QD, FOR FIVE DAYS EVERY TWO WEEKS
     Route: 030
  2. METHOTREXATE [Suspect]
     Active Substance: METHOTREXATE
     Dosage: 0.4 MG/KG,QD, FOR 5 CONSECUTIVE DAYS EVERY 14 DAYS
     Route: 030

REACTIONS (4)
  - Toxicity to various agents [Unknown]
  - Neutropenia [Unknown]
  - Mucosal inflammation [Unknown]
  - Pemphigoid gestationis [Unknown]
